FAERS Safety Report 7442424-4 (Version None)
Quarter: 2011Q2

REPORT INFORMATION
  Report Type: 
  Country: None (occurrence: None)
  Receive Date: 20110425
  Receipt Date: 20110425
  Transmission Date: 20111010
  Serious: No
  Sender: FDA-Public Use
  Company Number: None

PATIENT
  Age: 45 Year
  Sex: Female
  Weight: 46.2669 kg

DRUGS (1)
  1. LEVAQUIN [Suspect]
     Indication: GASTROINTESTINAL INFECTION
     Dosage: 1 TABLET 1XDAY PO
     Route: 048
     Dates: start: 20110407, end: 20110421

REACTIONS (2)
  - DRUG INEFFECTIVE [None]
  - PRODUCT COUNTERFEIT [None]
